FAERS Safety Report 23535745 (Version 1)
Quarter: 2024Q1

REPORT INFORMATION
  Report Type: Spontaneous
  Country: US (occurrence: US)
  Receive Date: 20240218
  Receipt Date: 20240218
  Transmission Date: 20240410
  Serious: No
  Sender: FDA-Public Use
  Company Number: US-SA-SAC20240213001477

PATIENT
  Sex: Female

DRUGS (17)
  1. KEVZARA [Suspect]
     Active Substance: SARILUMAB
     Indication: Rheumatoid arthritis
     Dosage: 200 MG, QOW
     Route: 058
  2. PREDNISONE [Concomitant]
     Active Substance: PREDNISONE
     Dosage: 200MG
  3. PLAQUENIL [Concomitant]
     Active Substance: HYDROXYCHLOROQUINE SULFATE
  4. BACLOFEN [Concomitant]
     Active Substance: BACLOFEN
  5. ARAVA [Concomitant]
     Active Substance: LEFLUNOMIDE
  6. ATIVAN [Concomitant]
     Active Substance: LORAZEPAM
  7. FOLIC ACID [Concomitant]
     Active Substance: FOLIC ACID
  8. GAS-X [Concomitant]
     Active Substance: DIMETHICONE
  9. LIPITOR [Concomitant]
     Active Substance: ATORVASTATIN CALCIUM
  10. HUMIRA [Concomitant]
     Active Substance: ADALIMUMAB
  11. LOPERAMIDE [Concomitant]
     Active Substance: LOPERAMIDE
  12. ASPIRIN [Concomitant]
     Active Substance: ASPIRIN
  13. NADOLOL [Concomitant]
     Active Substance: NADOLOL
  14. NEXIUM I.V. [Concomitant]
     Active Substance: ESOMEPRAZOLE SODIUM
  15. PROBIOTIC BLEND [Concomitant]
  16. TYLENOL [Concomitant]
     Active Substance: ACETAMINOPHEN
  17. MAGNESIUM [Concomitant]
     Active Substance: MAGNESIUM

REACTIONS (1)
  - Pain [Unknown]
